FAERS Safety Report 5594394-1 (Version None)
Quarter: 2008Q1

REPORT INFORMATION
  Report Type: 
  Country: None (occurrence: None)
  Receive Date: 20080117
  Receipt Date: 20080110
  Transmission Date: 20080703
  Serious: Yes (Death, Life-Threatening, Hospitalization)
  Sender: FDA-Public Use
  Company Number: JP-JNJFOC-20071006651

PATIENT
  Sex: Female
  Weight: 40 kg

DRUGS (14)
  1. REMICADE [Suspect]
     Route: 042
  2. REMICADE [Suspect]
     Route: 042
  3. REMICADE [Suspect]
     Indication: CROHN'S DISEASE
     Route: 042
  4. IMURAN [Suspect]
     Indication: CROHN'S DISEASE
     Route: 048
     Dates: start: 20060811
  5. GASCON [Concomitant]
     Indication: ABDOMINAL DISTENSION
     Route: 048
  6. BIODIASTASE [Concomitant]
     Indication: CROHN'S DISEASE
     Dosage: 3 CASPSULES DAILY
     Route: 048
  7. PENTASA [Concomitant]
     Indication: CROHN'S DISEASE
     Route: 048
  8. ENTERONON-R [Concomitant]
     Indication: CROHN'S DISEASE
     Route: 048
  9. TAKEPRON [Concomitant]
     Indication: REFLUX OESOPHAGITIS
     Route: 048
  10. PREDONINE [Concomitant]
     Indication: CROHN'S DISEASE
     Route: 048
  11. FERRUM [Concomitant]
     Indication: IRON DEFICIENCY ANAEMIA
     Route: 048
  12. POLYFUL [Concomitant]
     Indication: IRRITABLE BOWEL SYNDROME
     Dosage: 3G/3.6G
     Route: 048
  13. RACOL [Concomitant]
     Indication: CROHN'S DISEASE
     Route: 051
  14. SOLU-CORTEF [Concomitant]
     Indication: CROHN'S DISEASE
     Route: 048

REACTIONS (3)
  - METASTATIC NEOPLASM [None]
  - SIGNET-RING CELL CARCINOMA [None]
  - STAPHYLOCOCCAL INFECTION [None]
